FAERS Safety Report 21811440 (Version 2)
Quarter: 2023Q1

REPORT INFORMATION
  Report Type: Spontaneous
  Country: GB (occurrence: GB)
  Receive Date: 20230103
  Receipt Date: 20230127
  Transmission Date: 20230418
  Serious: Yes (Other)
  Sender: FDA-Public Use
  Company Number: None

PATIENT
  Sex: Female

DRUGS (1)
  1. MOMETASONE FUROATE [Suspect]
     Active Substance: MOMETASONE FUROATE
     Indication: Eczema
     Dosage: UNK

REACTIONS (13)
  - Product prescribing issue [Unknown]
  - Erythema [Not Recovered/Not Resolved]
  - Blister [Not Recovered/Not Resolved]
  - Eczema [Not Recovered/Not Resolved]
  - Sensitive skin [Not Recovered/Not Resolved]
  - Pruritus [Not Recovered/Not Resolved]
  - Neuralgia [Not Recovered/Not Resolved]
  - Product communication issue [Unknown]
  - Pain [Not Recovered/Not Resolved]
  - Skin atrophy [Not Recovered/Not Resolved]
  - Skin wound [Not Recovered/Not Resolved]
  - Swelling [Not Recovered/Not Resolved]
  - Topical steroid withdrawal reaction [Not Recovered/Not Resolved]

NARRATIVE: CASE EVENT DATE: 20221017
